FAERS Safety Report 15902360 (Version 1)
Quarter: 2019Q1

REPORT INFORMATION
  Report Type: Spontaneous
  Country: FR (occurrence: FR)
  Receive Date: 20190201
  Receipt Date: 20190201
  Transmission Date: 20190417
  Serious: Yes (Other)
  Sender: FDA-Public Use
  Company Number: FR-TEVA-2019-FR-1006457

PATIENT
  Sex: Female

DRUGS (1)
  1. TRAMADOL. [Suspect]
     Active Substance: TRAMADOL
     Indication: PRODUCT USED FOR UNKNOWN INDICATION
     Dosage: NOT INFORMED.
     Route: 065

REACTIONS (2)
  - Drug abuse [Not Recovered/Not Resolved]
  - Prescription form tampering [Not Recovered/Not Resolved]
